FAERS Safety Report 24294827 (Version 1)
Quarter: 2024Q3

REPORT INFORMATION
  Report Type: Spontaneous
  Country: US (occurrence: US)
  Receive Date: 20240907
  Receipt Date: 20240907
  Transmission Date: 20241017
  Serious: Yes (Other)
  Sender: AMGEN
  Company Number: US-AMGEN-USASP2024175118

PATIENT
  Age: 37 Year
  Sex: Female

DRUGS (4)
  1. PREDNISONE [Suspect]
     Active Substance: PREDNISONE
     Indication: Uveitis
     Dosage: UNK
     Route: 065
  2. FLUOCINOLONE ACETONIDE [Concomitant]
     Active Substance: FLUOCINOLONE ACETONIDE
     Dosage: 0.59 MILLIGRAM
  3. PREDNISOLONE ACETATE [Concomitant]
     Active Substance: PREDNISOLONE ACETATE
     Dosage: UNK UNK, BID
     Route: 065
  4. PREDNISOLONE ACETATE [Concomitant]
     Active Substance: PREDNISOLONE ACETATE
     Dosage: UNK UNK, Q2H
     Route: 065

REACTIONS (9)
  - Cystoid macular oedema [Unknown]
  - Keratitis interstitial [Unknown]
  - Keratic precipitates [Unknown]
  - Ocular lymphoma [Unknown]
  - Vitritis [Unknown]
  - Weight increased [Unknown]
  - Corneal oedema [Unknown]
  - Visual acuity reduced [Unknown]
  - Eye opacity [Unknown]
